FAERS Safety Report 6454324-7 (Version None)
Quarter: 2009Q4

REPORT INFORMATION
  Report Type: 
  Country: None (occurrence: None)
  Receive Date: 20091124
  Receipt Date: 20091120
  Transmission Date: 20100525
  Serious: Yes (Other)
  Sender: FDA-Public Use
  Company Number: TR-ROXANE LABORATORIES, INC.-2009-RO-01183RO

PATIENT
  Age: 44 Year
  Sex: Male

DRUGS (7)
  1. LITHIUM CARBONATE [Suspect]
     Indication: BIPOLAR DISORDER
     Dosage: 900 MG
  2. OLANZAPINE [Suspect]
     Indication: BIPOLAR DISORDER
     Dosage: 10 MG
     Route: 030
  3. OLANZAPINE [Suspect]
     Dosage: 20 MG
     Route: 030
  4. OLANZAPINE [Suspect]
     Dosage: 30 MG
     Route: 048
  5. HALOPERIDOL [Suspect]
     Indication: BIPOLAR DISORDER
     Dosage: 20 MG
  6. QUETIAPINE [Suspect]
     Indication: BIPOLAR DISORDER
     Dosage: 100 MG
  7. VALPROIC ACID [Concomitant]
     Indication: BIPOLAR DISORDER

REACTIONS (4)
  - CONSTIPATION [None]
  - DYSPHONIA [None]
  - HYPOTHYROIDISM [None]
  - OEDEMA PERIPHERAL [None]
